FAERS Safety Report 12755742 (Version 8)
Quarter: 2017Q1

REPORT INFORMATION
  Report Type: Spontaneous
  Country: US (occurrence: US)
  Receive Date: 20160916
  Receipt Date: 20170131
  Transmission Date: 20170428
  Serious: Yes (Hospitalization, Other)
  Sender: FDA-Public Use
  Company Number: US-PFIZER INC-2016393522

PATIENT
  Age: 70 Year
  Sex: Female
  Weight: 60.33 kg

DRUGS (17)
  1. SUTENT [Suspect]
     Active Substance: SUNITINIB MALATE
     Indication: RENAL CANCER METASTATIC
     Dosage: 37.5 MG, 1X/DAY (TAKE ONE (1) CAPSULE)
     Route: 048
  2. ALDACTONE [Concomitant]
     Active Substance: SPIRONOLACTONE
     Dosage: UNK
  3. SUTENT [Suspect]
     Active Substance: SUNITINIB MALATE
     Dosage: 37.5 MG, 1X/DAY
     Dates: start: 2016, end: 201611
  4. SUTENT [Suspect]
     Active Substance: SUNITINIB MALATE
     Dosage: 37.5 MG, DAILY
     Dates: start: 20160825
  5. SUTENT [Suspect]
     Active Substance: SUNITINIB MALATE
     Dosage: 25 MG, DAILY
     Route: 048
  6. EFFEXOR XR [Concomitant]
     Active Substance: VENLAFAXINE HYDROCHLORIDE
     Dosage: UNK
  7. ACIPHEX [Concomitant]
     Active Substance: RABEPRAZOLE SODIUM
     Dosage: UNK
  8. SUTENT [Suspect]
     Active Substance: SUNITINIB MALATE
     Dosage: 37.5 MG, 1X/DAY
     Route: 048
  9. LISINOPRIL. [Concomitant]
     Active Substance: LISINOPRIL
     Dosage: UNK
  10. MAGNESIUM [Concomitant]
     Active Substance: MAGNESIUM
     Dosage: UNK
  11. XANAX [Concomitant]
     Active Substance: ALPRAZOLAM
     Dosage: UNK
  12. METOPROLOL. [Concomitant]
     Active Substance: METOPROLOL
     Dosage: UNK
  13. COUMADIN [Concomitant]
     Active Substance: WARFARIN SODIUM
     Indication: THROMBOSIS
     Dosage: 1 MG, DAILY
  14. COQ10 [Concomitant]
     Active Substance: UBIDECARENONE
     Dosage: UNK
  15. FOLIC ACID. [Concomitant]
     Active Substance: FOLIC ACID
     Dosage: UNK
  16. ELAVIL [Concomitant]
     Active Substance: AMITRIPTYLINE HYDROCHLORIDE
     Dosage: UNK
  17. LOVENOX [Concomitant]
     Active Substance: ENOXAPARIN SODIUM
     Dosage: UNK

REACTIONS (31)
  - Poor quality sleep [Unknown]
  - Skin discolouration [Unknown]
  - Dry skin [Recovering/Resolving]
  - Dysphagia [Recovering/Resolving]
  - Glossodynia [Unknown]
  - Hypersomnia [Unknown]
  - Liver disorder [Unknown]
  - Appetite disorder [Recovering/Resolving]
  - Gait disturbance [Unknown]
  - Abdominal discomfort [Unknown]
  - Oropharyngeal pain [Unknown]
  - Vomiting [Unknown]
  - Madarosis [Unknown]
  - Abdominal pain upper [Unknown]
  - Infection [Not Recovered/Not Resolved]
  - Throat irritation [Unknown]
  - Odynophagia [Unknown]
  - Decreased appetite [Recovering/Resolving]
  - Fatigue [Unknown]
  - Burning sensation [Recovering/Resolving]
  - Expired product administered [Unknown]
  - Hypertension [Recovered/Resolved]
  - International normalised ratio increased [Unknown]
  - Urinary tract infection [Not Recovered/Not Resolved]
  - Gastrooesophageal reflux disease [Recovering/Resolving]
  - Cheilitis [Unknown]
  - Oral mucosal blistering [Unknown]
  - Asthenia [Unknown]
  - Stomatitis [Unknown]
  - Disturbance in attention [Recovering/Resolving]
  - Weight decreased [Recovering/Resolving]

NARRATIVE: CASE EVENT DATE: 2016
